FAERS Safety Report 6806452-1 (Version None)
Quarter: 2010Q2

REPORT INFORMATION
  Report Type: 
  Country: None (occurrence: None)
  Receive Date: 20100629
  Receipt Date: 20080403
  Transmission Date: 20101027
  Serious: No
  Sender: FDA-Public Use
  Company Number: US-PFIZER INC-2008011572

PATIENT
  Sex: Female

DRUGS (1)
  1. CLEOCIN VAGINAL OVULES [Suspect]
     Indication: VAGINAL INFECTION
     Route: 067

REACTIONS (2)
  - DRUG INEFFECTIVE [None]
  - UNDERDOSE [None]
